FAERS Safety Report 11147117 (Version 1)
Quarter: 2015Q2

REPORT INFORMATION
  Report Type: Spontaneous
  Country: US (occurrence: US)
  Receive Date: 20150528
  Receipt Date: 20150528
  Transmission Date: 20150821
  Serious: Yes (Hospitalization, Other)
  Sender: FDA-Public Use
  Company Number: US-GILEAD-2015-0154690

PATIENT
  Age: 42 Year
  Sex: Male

DRUGS (8)
  1. RIFAMPIN. [Concomitant]
     Active Substance: RIFAMPIN
     Indication: TUBERCULOSIS
     Dosage: UNK
  2. ETHAMBUTOL [Concomitant]
     Active Substance: ETHAMBUTOL HYDROCHLORIDE
     Indication: TUBERCULOSIS
     Dosage: UNK
  3. DOLUTEGRAVIR [Concomitant]
     Active Substance: DOLUTEGRAVIR
  4. EPZICOM [Concomitant]
     Active Substance: ABACAVIR SULFATE\LAMIVUDINE
  5. MOXIFLOXACIN [Concomitant]
     Active Substance: MOXIFLOXACIN
  6. ISONIAZID. [Concomitant]
     Active Substance: ISONIAZID
  7. PYRAZINAMIDE. [Concomitant]
     Active Substance: PYRAZINAMIDE
  8. STRIBILD [Suspect]
     Active Substance: COBICISTAT\ELVITEGRAVIR\EMTRICITABINE\TENOFOVIR DISOPROXIL FUMARATE
     Indication: PRODUCT USED FOR UNKNOWN INDICATION
     Route: 065

REACTIONS (5)
  - Atrial fibrillation [Unknown]
  - Adrenocortical insufficiency acute [Unknown]
  - Hepatotoxicity [Unknown]
  - Immune reconstitution inflammatory syndrome [Unknown]
  - Acute kidney injury [Unknown]
